FAERS Safety Report 15838301 (Version 1)
Quarter: 2019Q1

REPORT INFORMATION
  Report Type: Spontaneous
  Country: CN (occurrence: CN)
  Receive Date: 20190117
  Receipt Date: 20190117
  Transmission Date: 20190417
  Serious: Yes (Other)
  Sender: FDA-Public Use
  Company Number: CN-PFIZER INC-2019002947

PATIENT
  Age: 5 Year
  Sex: Male
  Weight: 21 kg

DRUGS (2)
  1. METHYLPREDNISOLONE SODIUM SUCCINATE. [Suspect]
     Active Substance: METHYLPREDNISOLONE SODIUM SUCCINATE
     Indication: ASTHMA
     Dosage: 30 MG, 1X/DAY
     Route: 041
     Dates: start: 20181022, end: 20181022
  2. UNASYN [Suspect]
     Active Substance: AMPICILLIN SODIUM\SULBACTAM SODIUM
     Indication: ASTHMA
     Dosage: 1.5 G, 1X/DAY
     Route: 041
     Dates: start: 20181022, end: 20181022

REACTIONS (2)
  - Chest pain [Recovering/Resolving]
  - Pallor [Recovering/Resolving]

NARRATIVE: CASE EVENT DATE: 20181022
